FAERS Safety Report 5470145-6 (Version None)
Quarter: 2007Q3

REPORT INFORMATION
  Report Type: 
  Country: None (occurrence: None)
  Receive Date: 20070924
  Receipt Date: 20070912
  Transmission Date: 20080115
  Serious: Yes (Hospitalization)
  Sender: FDA-Public Use
  Company Number: 018358

PATIENT
  Age: 22 Year
  Sex: Female
  Weight: 73.5 kg

DRUGS (1)
  1. PLAN B [Suspect]
     Indication: CONTRACEPTION
     Dosage: 2 TABLET, SINGLE, ORAL
     Route: 048
     Dates: start: 20070808, end: 20070808

REACTIONS (5)
  - DRUG EXPOSURE DURING PREGNANCY [None]
  - ECTOPIC PREGNANCY [None]
  - ECTOPIC PREGNANCY TERMINATION [None]
  - METRORRHAGIA [None]
  - VAGINAL HAEMORRHAGE [None]
